FAERS Safety Report 7391571-4 (Version None)
Quarter: 2011Q2

REPORT INFORMATION
  Report Type: 
  Country: None (occurrence: None)
  Receive Date: 20110404
  Receipt Date: 20110322
  Transmission Date: 20111010
  Serious: Yes (Hospitalization, Other)
  Sender: FDA-Public Use
  Company Number: PHHY2011PE24012

PATIENT
  Sex: Male

DRUGS (1)
  1. RASILEZ HCT [Suspect]
     Indication: HYPERTENSION
     Dosage: UNK
     Dates: start: 20100217

REACTIONS (3)
  - PNEUMONIA [None]
  - GASTROINTESTINAL INFECTION [None]
  - MYOCARDIAL INFARCTION [None]
